FAERS Safety Report 8455226-7 (Version None)
Quarter: 2012Q2

REPORT INFORMATION
  Report Type: 
  Country: None (occurrence: None)
  Receive Date: 20120621
  Receipt Date: 20120615
  Transmission Date: 20120825
  Serious: Yes (Death)
  Sender: FDA-Public Use
  Company Number: JP-ASTELLAS-2012JP005474

PATIENT
  Age: 38 Year
  Sex: Female

DRUGS (6)
  1. PROGRAF [Suspect]
     Indication: LIVER TRANSPLANT
     Route: 065
  2. PREDNISOLONE [Concomitant]
     Indication: IMMUNOSUPPRESSION
  3. METHYLPREDNISOLONE [Concomitant]
     Indication: LIVER TRANSPLANT
     Route: 065
  4. PREDNISOLONE [Concomitant]
     Indication: LIVER TRANSPLANT
     Route: 065
  5. METHYLPREDNISOLONE [Concomitant]
     Indication: IMMUNOSUPPRESSION
  6. PROGRAF [Suspect]
     Indication: IMMUNOSUPPRESSION

REACTIONS (1)
  - POST TRANSPLANT LYMPHOPROLIFERATIVE DISORDER [None]
